FAERS Safety Report 21949153 (Version 2)
Quarter: 2023Q2

REPORT INFORMATION
  Report Type: Report from Study
  Country: GB (occurrence: None)
  Receive Date: 20230203
  Receipt Date: 20230417
  Transmission Date: 20230722
  Serious: Yes (Other)
  Sender: FDA-Public Use
  Company Number: GB-Merck Healthcare KGaA-9381037

PATIENT
  Sex: Male

DRUGS (1)
  1. SAIZEN [Suspect]
     Active Substance: SOMATROPIN
     Indication: Growth hormone deficiency
     Route: 058
     Dates: start: 20220808

REACTIONS (6)
  - Autism spectrum disorder [Unknown]
  - Photopsia [Unknown]
  - Epistaxis [Unknown]
  - Attention deficit hyperactivity disorder [Unknown]
  - Anaemia [Unknown]
  - Headache [Unknown]
